FAERS Safety Report 23722588 (Version 1)
Quarter: 2024Q2

REPORT INFORMATION
  Report Type: Spontaneous
  Country: US (occurrence: US)
  Receive Date: 20240409
  Receipt Date: 20240409
  Transmission Date: 20240716
  Serious: Yes (Other)
  Sender: FDA-Public Use
  Company Number: US-BRISTOL-MYERS SQUIBB COMPANY-2024-051896

PATIENT
  Age: 76 Year
  Sex: Female
  Weight: 95.3 kg

DRUGS (17)
  1. REVLIMID [Suspect]
     Active Substance: LENALIDOMIDE
     Indication: Plasma cell myeloma
     Dosage: FREQUENCY: 21DAYS ON THEN 7DAYS OFF
     Route: 048
     Dates: start: 20240227, end: 20240314
  2. MORPHINE [Concomitant]
     Active Substance: MORPHINE
  3. ASPIRIN [Concomitant]
     Active Substance: ASPIRIN
  4. APAP [Concomitant]
     Active Substance: ACETAMINOPHEN
  5. ACYCLOVIR [Concomitant]
     Active Substance: ACYCLOVIR
  6. AMLODIPINE [Concomitant]
     Active Substance: AMLODIPINE BESYLATE
  7. ATORVASTATIN [Concomitant]
     Active Substance: ATORVASTATIN
  8. DEXAMETHASONE [Concomitant]
     Active Substance: DEXAMETHASONE
  9. DICLOFENAC [Concomitant]
     Active Substance: DICLOFENAC
  10. LIDOCAINE [Concomitant]
     Active Substance: LIDOCAINE
  11. LOSARTAN [Concomitant]
     Active Substance: LOSARTAN
  12. MELOXICAM [Concomitant]
     Active Substance: MELOXICAM
  13. METFORMIN [Concomitant]
     Active Substance: METFORMIN HYDROCHLORIDE
  14. SULFAMETHOXAZOLE [Concomitant]
     Active Substance: SULFAMETHOXAZOLE
  15. ONDANSETRON [Concomitant]
     Active Substance: ONDANSETRON
  16. PROCHLORPERAZINE [Concomitant]
     Active Substance: PROCHLORPERAZINE
  17. SENNA LEAF [Concomitant]
     Active Substance: SENNA LEAF

REACTIONS (1)
  - Dementia Alzheimer^s type [Unknown]
